FAERS Safety Report 20737398 (Version 2)
Quarter: 2022Q2

REPORT INFORMATION
  Report Type: Report from Study
  Country: US (occurrence: US)
  Receive Date: 20220421
  Receipt Date: 20220426
  Transmission Date: 20220720
  Serious: Yes (Life-Threatening, Hospitalization, Other)
  Sender: FDA-Public Use
  Company Number: US-ABBVIE-22K-163-4365291-00

PATIENT
  Age: 68 Year
  Sex: Male
  Weight: 145.73 kg

DRUGS (5)
  1. LUPRON [Suspect]
     Active Substance: LEUPROLIDE ACETATE
     Indication: Prostate cancer
     Route: 030
     Dates: start: 202203
  2. RINVOQ [Suspect]
     Active Substance: UPADACITINIB
     Indication: Rheumatoid arthritis
     Route: 048
     Dates: start: 202101
  3. MODERNA COVID-19 VACCINE [Concomitant]
     Active Substance: ELASOMERAN
     Indication: COVID-19 immunisation
     Dosage: 1ST DOSE
     Route: 030
     Dates: start: 20210107, end: 20210107
  4. MODERNA COVID-19 VACCINE [Concomitant]
     Active Substance: ELASOMERAN
     Dosage: 2ND DOSE
     Route: 030
     Dates: start: 202102, end: 202102
  5. MODERNA COVID-19 VACCINE [Concomitant]
     Active Substance: ELASOMERAN
     Dosage: 3RD DOSE
     Route: 030
     Dates: start: 20210816, end: 20210816

REACTIONS (13)
  - Cardiac disorder [Unknown]
  - Aneurysm [Not Recovered/Not Resolved]
  - Prostate cancer [Unknown]
  - Haemoglobin decreased [Unknown]
  - Myocardial infarction [Unknown]
  - Thrombosis [Not Recovered/Not Resolved]
  - Anaemia [Unknown]
  - Cardiac disorder [Unknown]
  - Angina pectoris [Unknown]
  - Haemorrhage [Unknown]
  - Unevaluable event [Unknown]
  - Red blood cell count decreased [Unknown]
  - Red blood cell count decreased [Unknown]

NARRATIVE: CASE EVENT DATE: 20210901
